FAERS Safety Report 21919398 (Version 1)
Quarter: 2023Q1

REPORT INFORMATION
  Report Type: Spontaneous
  Country: RU (occurrence: None)
  Receive Date: 20230127
  Receipt Date: 20230127
  Transmission Date: 20230418
  Serious: Yes (Hospitalization)
  Sender: FDA-Public Use
  Company Number: 2023A021050

PATIENT
  Age: 40 Year
  Sex: Female

DRUGS (1)
  1. PULMICORT TURBUHALER [Suspect]
     Active Substance: BUDESONIDE
     Indication: Asthma
     Dosage: 2MG/ML DAILY
     Route: 055

REACTIONS (3)
  - Bacterial infection [Unknown]
  - Asthma [Unknown]
  - Drug ineffective [Unknown]
